FAERS Safety Report 9817308 (Version 1)
Quarter: 2014Q1

REPORT INFORMATION
  Report Type: Spontaneous
  Country: AR (occurrence: AR)
  Receive Date: 20140115
  Receipt Date: 20140115
  Transmission Date: 20141002
  Serious: Yes (Other)
  Sender: FDA-Public Use
  Company Number: AR-ROCHE-1330821

PATIENT
  Age: 32 Year
  Sex: Male

DRUGS (1)
  1. AVASTIN [Suspect]
     Indication: NON-SMALL CELL LUNG CANCER
     Route: 065

REACTIONS (8)
  - Hydrocephalus [Not Recovered/Not Resolved]
  - Meningeal disorder [Unknown]
  - Leukoencephalopathy [Unknown]
  - Leukoencephalopathy [Unknown]
  - Leukoencephalopathy [Unknown]
  - Leukoencephalopathy [Unknown]
  - Leukoencephalopathy [Unknown]
  - Headache [Unknown]
